FAERS Safety Report 5461007-9 (Version None)
Quarter: 2007Q3

REPORT INFORMATION
  Report Type: 
  Country: None (occurrence: None)
  Receive Date: 20070823
  Receipt Date: 20070606
  Transmission Date: 20080115
  Serious: Yes (Other)
  Sender: FDA-Public Use
  Company Number: GXBR2007US01149

PATIENT
  Age: 52 Year
  Sex: Male
  Weight: 79.4 kg

DRUGS (5)
  1. LISINOPRIL [Suspect]
     Indication: HYPERTENSION
     Dosage: 40 MG BID ORAL; 40 MG QD ORAL
     Route: 048
     Dates: start: 20060101, end: 20070531
  2. LISINOPRIL [Suspect]
     Indication: HYPERTENSION
     Dosage: 40 MG BID ORAL; 40 MG QD ORAL
     Route: 048
     Dates: start: 20070601
  3. ATENOLOL [Concomitant]
  4. TRIAMTERENE (TRIAMTERENE) [Concomitant]
  5. NORVASC [Concomitant]

REACTIONS (1)
  - ERECTILE DYSFUNCTION [None]
